FAERS Safety Report 21374626 (Version 3)
Quarter: 2023Q2

REPORT INFORMATION
  Report Type: Spontaneous
  Country: JP (occurrence: JP)
  Receive Date: 20220926
  Receipt Date: 20230626
  Transmission Date: 20230721
  Serious: Yes (Other)
  Sender: FDA-Public Use
  Company Number: JP-ONO-2022JP024695

PATIENT
  Age: 74 Year
  Sex: Male

DRUGS (4)
  1. YERVOY [Suspect]
     Active Substance: IPILIMUMAB
     Indication: Malignant melanoma
     Dosage: UNK
     Route: 041
  2. OPDIVO [Suspect]
     Active Substance: NIVOLUMAB
     Indication: Malignant melanoma
     Dosage: UNK
     Route: 041
  3. OPDIVO [Suspect]
     Active Substance: NIVOLUMAB
     Dosage: UNK
     Route: 042
  4. SULFAMETHOXAZOLE\TRIMETHOPRIM [Suspect]
     Active Substance: SULFAMETHOXAZOLE\TRIMETHOPRIM
     Indication: Malignant melanoma
     Dosage: UNK

REACTIONS (6)
  - Leukoderma [Not Recovered/Not Resolved]
  - Enterocolitis [Unknown]
  - Alopecia areata [Recovered/Resolved]
  - Eczema [Not Recovered/Not Resolved]
  - Drug eruption [Recovered/Resolved]
  - Eosinophilia [Not Recovered/Not Resolved]
